FAERS Safety Report 25367048 (Version 2)
Quarter: 2025Q3

REPORT INFORMATION
  Report Type: Spontaneous
  Country: RU (occurrence: RU)
  Receive Date: 20250528
  Receipt Date: 20250829
  Transmission Date: 20251020
  Serious: Yes (Hospitalization, Other)
  Sender: ORGANON
  Company Number: RU-ORGANON-O2505RUS003056

PATIENT
  Age: 45 Year
  Sex: Female
  Weight: 54 kg

DRUGS (2)
  1. ETONOGESTREL [Suspect]
     Active Substance: ETONOGESTREL
     Indication: Contraception
     Route: 059
     Dates: start: 200606, end: 2022
  2. ETONOGESTREL [Suspect]
     Active Substance: ETONOGESTREL
     Route: 059
     Dates: start: 2022

REACTIONS (6)
  - Alcohol abuse [Recovered/Resolved]
  - Abnormal uterine bleeding [Unknown]
  - Vaginal discharge [Recovered/Resolved]
  - Incorrect product administration duration [Unknown]
  - Amenorrhoea [Recovered/Resolved]
  - Uterine leiomyoma [Unknown]

NARRATIVE: CASE EVENT DATE: 20060101
